FAERS Safety Report 25542958 (Version 1)
Quarter: 2025Q3

REPORT INFORMATION
  Report Type: Other
  Country: EU (occurrence: EU)
  Receive Date: 20250711
  Receipt Date: 20250711
  Transmission Date: 20251020
  Serious: Yes (Hospitalization, Other)
  Sender: ESJAY PHARMA
  Company Number: EU-ESJAY PHARMA-000815

PATIENT
  Age: 68 Year
  Sex: Female

DRUGS (14)
  1. IMATINIB [Suspect]
     Active Substance: IMATINIB
     Indication: Gastrointestinal stromal tumour
     Dates: start: 20230315, end: 20230424
  2. SUNITINIB [Concomitant]
     Active Substance: SUNITINIB
     Indication: Gastrointestinal stromal tumour
     Dates: start: 20231108, end: 20240515
  3. SUNITINIB [Concomitant]
     Active Substance: SUNITINIB
     Indication: Gastrointestinal stromal tumour
     Dates: start: 20240611
  4. IMATINIB [Suspect]
     Active Substance: IMATINIB
     Indication: Gastrointestinal stromal tumour
     Dates: start: 20230925, end: 20230927
  5. IMATINIB [Suspect]
     Active Substance: IMATINIB
     Indication: Immune tolerance induction
     Route: 048
     Dates: start: 20240422
  6. IMATINIB [Suspect]
     Active Substance: IMATINIB
     Indication: Immune tolerance induction
     Route: 048
     Dates: start: 20240429
  7. IMATINIB [Suspect]
     Active Substance: IMATINIB
     Indication: Immune tolerance induction
     Route: 048
     Dates: start: 20240506
  8. IMATINIB [Suspect]
     Active Substance: IMATINIB
     Indication: Immune tolerance induction
     Route: 048
     Dates: start: 20240523
  9. IMATINIB [Suspect]
     Active Substance: IMATINIB
     Indication: Immune tolerance induction
     Route: 048
     Dates: start: 20240528
  10. IMATINIB [Suspect]
     Active Substance: IMATINIB
     Indication: Immune tolerance induction
     Route: 048
     Dates: start: 20240603
  11. IMATINIB [Suspect]
     Active Substance: IMATINIB
     Indication: Immune tolerance induction
     Route: 048
     Dates: start: 20240604
  12. IMATINIB [Suspect]
     Active Substance: IMATINIB
     Indication: Immune tolerance induction
     Route: 048
     Dates: start: 20240605
  13. IMATINIB [Suspect]
     Active Substance: IMATINIB
     Indication: Immune tolerance induction
     Route: 048
     Dates: start: 20240606
  14. IMATINIB [Suspect]
     Active Substance: IMATINIB
     Indication: Immune tolerance induction
     Route: 048
     Dates: start: 20240609, end: 20240611

REACTIONS (3)
  - Type I hypersensitivity [Recovering/Resolving]
  - Drug reaction with eosinophilia and systemic symptoms [Recovering/Resolving]
  - Type IV hypersensitivity reaction [Recovering/Resolving]

NARRATIVE: CASE EVENT DATE: 20230927
